FAERS Safety Report 5288654-1 (Version None)
Quarter: 2007Q2

REPORT INFORMATION
  Report Type: 
  Country: None (occurrence: None)
  Receive Date: 20070405
  Receipt Date: 20070326
  Transmission Date: 20071010
  Serious: Yes (Hospitalization)
  Sender: FDA-Public Use
  Company Number: US-SHR-US-2006-023998

PATIENT
  Age: 37 Year
  Sex: Male

DRUGS (48)
  1. BETASERON [Suspect]
     Indication: RELAPSING-REMITTING MULTIPLE SCLEROSIS
     Dosage: 1 ML, EVERY 2D
     Route: 058
     Dates: start: 20040514, end: 20060810
  2. CARBAMAZEPINE [Concomitant]
     Indication: NEURALGIA
     Dosage: 300 MG, 2X/DAY
     Route: 048
     Dates: start: 20010801
  3. NORTRIPTYLINE HCL [Concomitant]
     Indication: PARAESTHESIA
     Dosage: 50 MG, BED T.
     Route: 048
     Dates: start: 20010801, end: 20040615
  4. NORTRIPTYLINE HCL [Concomitant]
     Dosage: 75 MG, BED T.
     Route: 048
     Dates: start: 20040615, end: 20041006
  5. AMANTADINE HCL [Concomitant]
     Indication: FATIGUE
     Dosage: 100 MG, 2X/DAY
     Route: 048
     Dates: start: 20031101, end: 20040630
  6. AMANTADINE HCL [Concomitant]
     Dosage: 100 MG, 2X/DAY, PRN
     Route: 048
     Dates: start: 20040915, end: 20041101
  7. ESCITALOPRAM OXALATE [Concomitant]
     Indication: DEPRESSION
     Dosage: 20 MG (1/2 - 1), 1X/DAY
     Route: 048
     Dates: start: 20040929
  8. HYDROCHLOROTHIAZIDE W/IRBESARTAN [Concomitant]
     Indication: HYPERTENSION
     Dosage: 12.5/150 MG, 1X/DAY
     Route: 048
     Dates: start: 20040714, end: 20041215
  9. HYDROCHLOROTHIAZIDE W/IRBESARTAN [Concomitant]
     Dosage: 12.8/300 MG, 1X/DAY
     Route: 048
     Dates: start: 20041215, end: 20050304
  10. HYDROCHLOROTHIAZIDE W/IRBESARTAN [Concomitant]
     Dosage: 12.8/150 MG, 1X/DAY, PRN
     Route: 048
     Dates: start: 20050304
  11. HYDROCHLOROTHIAZIDE W/IRBESARTAN [Concomitant]
     Dosage: UNK, 1X/DAY
     Dates: end: 20031101
  12. DAYQUIL ^FOX^ [Concomitant]
     Indication: SINUS DISORDER
     Dosage: UNK, AS REQ'D
     Route: 048
     Dates: start: 20030101
  13. NYQUIL [Concomitant]
     Indication: SINUS DISORDER
     Dosage: UNK, BED T.
     Route: 048
     Dates: start: 20030101
  14. ACETAMINOPHEN [Concomitant]
     Indication: ARTHRITIS
     Dosage: 500 MG, AS REQ'D
     Route: 048
     Dates: start: 20030901
  15. GABAPENTIN [Concomitant]
     Indication: NEURALGIA
     Dosage: 1500 MG, 1X/DAY
     Route: 048
     Dates: start: 20030924, end: 20050813
  16. GABAPENTIN [Concomitant]
     Dosage: 600 MG, 3X/DAY
     Route: 048
     Dates: start: 20050813
  17. M.V.I. [Concomitant]
     Indication: VITAMIN SUPPLEMENTATION
     Dosage: UNK, 1X/DAY
     Route: 048
     Dates: start: 20030901
  18. VITAMIN B COMPLEX CAP [Concomitant]
     Indication: VITAMIN SUPPLEMENTATION
     Dosage: UNK, 1X/DAY
     Route: 048
     Dates: start: 20030901
  19. DIPHENHYDRAMINE HCL [Concomitant]
     Dosage: 25 MG, 1X/DAY, EVERY PM
     Route: 048
     Dates: start: 20040514, end: 20040514
  20. CAFFEINE [Concomitant]
     Dosage: 200 MG, UNK
     Route: 048
     Dates: start: 20040623, end: 20041101
  21. ALPRAZOLAM [Interacting]
     Indication: ANXIETY
     Dosage: 1 MG (1/2 - 1), 3X/DAY, PRN
     Route: 048
     Dates: start: 20040814
  22. DARVOCET-N 100 [Concomitant]
     Indication: INJECTION SITE PAIN
     Dosage: 100 MG, 1-2 Q4-6HRS, AS REQ'D
     Route: 048
     Dates: start: 20040814, end: 20040901
  23. IBUPROFEN [Concomitant]
     Dosage: 400 MG, EVERY 4H, PRN
     Route: 048
     Dates: start: 20040514, end: 20041201
  24. SIMVASTATIN [Concomitant]
     Indication: HYPERLIPIDAEMIA
     Dosage: 40 MG, 1X/DAY
     Route: 048
     Dates: start: 20040714
  25. MODAFINIL [Interacting]
     Indication: FATIGUE
     Dosage: 100-200 MG, 1X/DAY
     Route: 048
     Dates: start: 20040701, end: 20040914
  26. MODAFINIL [Interacting]
     Dosage: 200 MG, 1X/DAY
     Route: 048
     Dates: start: 20041101, end: 20050304
  27. MODAFINIL [Interacting]
     Dosage: 200 MG, AS REQ'D
     Route: 048
     Dates: start: 20050304
  28. SILDENAFIL CITRATE [Concomitant]
     Indication: SEXUAL DYSFUNCTION
     Dosage: 50 MG, AS REQ'D
     Route: 048
     Dates: start: 20040922
  29. METHYLPREDNISOLONE 16MG TAB [Concomitant]
     Indication: MULTIPLE SCLEROSIS RELAPSE
     Dosage: 1 G, 1X/DAY
     Route: 042
     Dates: start: 20050307, end: 20050309
  30. SODIUM CHLORIDE [Concomitant]
     Dosage: 250 ML, 1X/DAY
     Route: 042
     Dates: start: 20050307, end: 20050309
  31. TERAZOSIN HCL [Concomitant]
     Dosage: 1-2 MG, BED T.
     Route: 048
     Dates: start: 20050205, end: 20050201
  32. TERAZOSIN HCL [Concomitant]
     Dosage: 4 MG, BED T.
     Route: 048
     Dates: start: 20050201, end: 20050813
  33. TERAZOSIN HCL [Concomitant]
     Dosage: 10 MG, BED T.
     Route: 048
     Dates: start: 20050813, end: 20051116
  34. TAMSULOSIN HCL [Concomitant]
     Dosage: 4 MG, 1X/DAY
     Route: 048
     Dates: start: 20051116
  35. FUROSEMIDE [Concomitant]
     Dosage: 40 MG, 1X/DAY, PRN
     Route: 048
     Dates: start: 20060227
  36. POTASSIUM CHLORIDE [Concomitant]
     Dosage: 20 MEQ, 1X/DAY
     Route: 048
     Dates: start: 20060227
  37. BENADRYL [Concomitant]
     Indication: SINUSITIS
     Dosage: 25-50 MG, AS REQ'D
     Route: 048
     Dates: start: 20040515
  38. LISINOPRIL [Concomitant]
     Indication: HYPERTENSION
     Dosage: UNK, 1X/DAY
     Route: 048
     Dates: end: 20031201
  39. PREDNISONE [Concomitant]
     Indication: MULTIPLE SCLEROSIS RELAPSE
     Dosage: 500 MG DAILY
     Route: 048
     Dates: start: 20031030, end: 20031101
  40. PREDNISONE [Concomitant]
     Dosage: 300 MG DAILY
     Route: 048
     Dates: start: 20031102, end: 20031102
  41. PREDNISONE [Concomitant]
     Dosage: 200 MG DAILY
     Route: 048
     Dates: start: 20031103, end: 20031103
  42. PREDNISONE [Concomitant]
     Dosage: 100 MG DAILY
     Route: 048
     Dates: start: 20031104, end: 20031104
  43. FAMOTIDINE [Concomitant]
     Indication: PROPHYLAXIS AGAINST GASTROINTESTINAL ULCER
     Dosage: 40 MG, 1X/DAY
     Route: 048
     Dates: start: 20031030, end: 20031119
  44. BENADRYL [Concomitant]
     Dosage: 25-50 MG AS REQ'D
     Route: 048
     Dates: start: 20030901, end: 20040513
  45. DIPHENHYDRAMINE HCL [Concomitant]
     Indication: INSOMNIA
     Dosage: 25-50 MG PRN
     Route: 048
     Dates: start: 20040101, end: 20050205
  46. METHYLPREDNISOLONE 16MG TAB [Concomitant]
     Dosage: 1000 MG, 1X/DAY
     Route: 042
     Dates: start: 20051115, end: 20051117
  47. SODIUM CHLORIDE [Concomitant]
     Dosage: 250 ML DAILY
     Route: 042
     Dates: start: 20051115, end: 20051117
  48. CEFDINIR [Concomitant]
     Dosage: 300 MG, 2X/DAY
     Route: 048
     Dates: start: 20040512, end: 20040516

REACTIONS (3)
  - APPENDICITIS [None]
  - NEUROMA [None]
  - UMBILICAL HERNIA [None]
